FAERS Safety Report 6336891-7 (Version None)
Quarter: 2009Q3

REPORT INFORMATION
  Report Type: 
  Country: None (occurrence: None)
  Receive Date: 20090901
  Receipt Date: 20090820
  Transmission Date: 20100115
  Serious: Yes (Hospitalization)
  Sender: FDA-Public Use
  Company Number: US-ROCHE-651829

PATIENT
  Age: 48 Year
  Sex: Male
  Weight: 78.9 kg

DRUGS (3)
  1. PEG-INTERFERON ALFA 2A (RO 25-8310) [Suspect]
     Indication: HEPATITIS C
     Route: 058
     Dates: start: 20090528
  2. RIBAVIRIN [Suspect]
     Indication: HEPATITIS C
     Route: 048
     Dates: start: 20090528
  3. BLINDED PROTEASE INHIBITOR NOS [Suspect]
     Indication: HEPATITIS C
     Route: 048
     Dates: start: 20090528

REACTIONS (1)
  - GUN SHOT WOUND [None]
